FAERS Safety Report 10713622 (Version 2)
Quarter: 2015Q1

REPORT INFORMATION
  Report Type: Report from Study
  Country: US (occurrence: US)
  Receive Date: 20150115
  Receipt Date: 20150120
  Transmission Date: 20150721
  Serious: Yes (Death, Hospitalization, Other)
  Sender: FDA-Public Use
  Company Number: US-GILEAD-2015-0131224

PATIENT
  Age: 71 Year
  Sex: Female

DRUGS (2)
  1. IDELALISIB [Suspect]
     Active Substance: IDELALISIB
     Indication: B-CELL LYMPHOMA
  2. IDELALISIB [Suspect]
     Active Substance: IDELALISIB
     Indication: B-CELL LYMPHOMA
     Dosage: 150 MG, BID
     Route: 048
     Dates: start: 20141113, end: 20141229

REACTIONS (5)
  - Urinary tract infection [Unknown]
  - Diarrhoea [Unknown]
  - Death [Fatal]
  - Pneumonia [Unknown]
  - Failure to thrive [Unknown]

NARRATIVE: CASE EVENT DATE: 20150109
